FAERS Safety Report 25490508 (Version 1)
Quarter: 2025Q2

REPORT INFORMATION
  Report Type: Spontaneous
  Country: US (occurrence: US)
  Receive Date: 20250628
  Receipt Date: 20250628
  Transmission Date: 20250717
  Serious: No
  Sender: SANOFI AVENTIS
  Company Number: US-SA-2025SA182757

PATIENT
  Sex: Female
  Weight: 88.64 kg

DRUGS (11)
  1. DUPIXENT [Suspect]
     Active Substance: DUPILUMAB
     Indication: Asthma
     Dosage: 300 MG, QOW
     Route: 058
  2. MELATONIN [Concomitant]
     Active Substance: MELATONIN
  3. COLACE [Concomitant]
     Active Substance: DOCUSATE SODIUM
  4. RIBOFLAVIN [Concomitant]
     Active Substance: RIBOFLAVIN
  5. MOMETASONE FUROATE [Concomitant]
     Active Substance: MOMETASONE FUROATE
  6. SUDAFED 12 HOUR [Concomitant]
     Active Substance: PSEUDOEPHEDRINE HYDROCHLORIDE
  7. COENZYME Q10 [Concomitant]
     Active Substance: DIETARY SUPPLEMENT\UBIDECARENONE
  8. ALLEGRA ALLERGY [Concomitant]
     Active Substance: FEXOFENADINE HYDROCHLORIDE
  9. VITAMIN B12 [Concomitant]
     Active Substance: CYANOCOBALAMIN
  10. BAYER ASPIRIN [Concomitant]
     Active Substance: ASPIRIN
  11. RECLAST [Concomitant]
     Active Substance: ZOLEDRONIC ACID

REACTIONS (1)
  - Drug ineffective [Unknown]
